FAERS Safety Report 15332556 (Version 1)
Quarter: 2018Q3

REPORT INFORMATION
  Report Type: Spontaneous
  Country: US (occurrence: US)
  Receive Date: 20180830
  Receipt Date: 20180830
  Transmission Date: 20181010
  Serious: No
  Sender: FDA-Public Use
  Company Number: US-SUN PHARMACEUTICAL INDUSTRIES LTD-2018US-162506

PATIENT
  Sex: Male

DRUGS (1)
  1. DOXYCYCLINE. [Suspect]
     Active Substance: DOXYCYCLINE
     Indication: PRODUCT USED FOR UNKNOWN INDICATION
     Dosage: TOOK ON SUNDAY, TWO YESTERDAY AND TOTAL 3 CAPSLES TAKEN ALTOGETHER
     Route: 065
     Dates: start: 201801

REACTIONS (7)
  - Abdominal pain upper [Unknown]
  - Diarrhoea [Unknown]
  - Sneezing [Unknown]
  - Headache [Unknown]
  - Vomiting [Unknown]
  - Muscle spasms [Unknown]
  - Cold sweat [Unknown]

NARRATIVE: CASE EVENT DATE: 201801
